FAERS Safety Report 5002019-9 (Version None)
Quarter: 2006Q2

REPORT INFORMATION
  Report Type: 
  Country: None (occurrence: None)
  Receive Date: 20060511
  Receipt Date: 20060511
  Transmission Date: 20061013
  Serious: No
  Sender: FDA-Public Use
  Company Number: None

PATIENT
  Age: 26 Year
  Sex: Female

DRUGS (1)
  1. REPRONEX [Suspect]
     Dosage: 75 IU SQ BID
     Route: 058
     Dates: start: 20060429, end: 20060503

REACTIONS (5)
  - INJECTION SITE PAIN [None]
  - INJECTION SITE PRURITUS [None]
  - RASH ERYTHEMATOUS [None]
  - SELF-MEDICATION [None]
  - URTICARIA [None]
